FAERS Safety Report 5443588-4 (Version None)
Quarter: 2007Q3

REPORT INFORMATION
  Report Type: 
  Country: None (occurrence: None)
  Receive Date: 20070905
  Receipt Date: 20070828
  Transmission Date: 20080115
  Serious: Yes (Hospitalization)
  Sender: FDA-Public Use
  Company Number: FR-ASTRAZENECA-2007CG01237

PATIENT
  Age: 39 Year
  Sex: Female

DRUGS (6)
  1. DIPRIVAN [Suspect]
     Route: 042
     Dates: start: 20060519, end: 20060519
  2. SUFENTA [Suspect]
     Dates: start: 20060519, end: 20060519
  3. TRACRIUM [Suspect]
     Dates: start: 20060519, end: 20060519
  4. KETALAR [Suspect]
     Dates: start: 20060519, end: 20060519
  5. CEFOTAXIME PANPHARMA [Suspect]
     Dates: start: 20060519, end: 20060519
  6. CEFOXITINE PANPHARMA [Suspect]
     Dates: start: 20060519, end: 20060519

REACTIONS (3)
  - DRUG ERUPTION [None]
  - EOSINOPHILIA [None]
  - RASH ERYTHEMATOUS [None]
